FAERS Safety Report 9092486 (Version 1)
Quarter: 2013Q1

REPORT INFORMATION
  Report Type: Report from Study
  Country: CA (occurrence: CA)
  Receive Date: 20130201
  Receipt Date: 20130201
  Transmission Date: 20140127
  Serious: Yes (Hospitalization)
  Sender: FDA-Public Use
  Company Number: CA-JNJFOC-20130107917

PATIENT
  Sex: Male
  Weight: 39 kg

DRUGS (6)
  1. REMICADE [Suspect]
     Indication: COLITIS ULCERATIVE
     Route: 042
  2. REMICADE [Suspect]
     Indication: COLITIS ULCERATIVE
     Dosage: Q WEEKS
     Route: 042
     Dates: start: 201109
  3. REMICADE [Suspect]
     Indication: COLITIS ULCERATIVE
     Route: 042
     Dates: start: 20120911, end: 20130109
  4. PREDNISONE [Suspect]
     Indication: COLITIS ULCERATIVE
     Route: 048
  5. PREDNISONE [Suspect]
     Indication: COLITIS ULCERATIVE
     Route: 048
  6. PREDNISONE [Suspect]
     Indication: COLITIS ULCERATIVE
     Route: 048

REACTIONS (1)
  - Colitis ulcerative [Not Recovered/Not Resolved]
